FAERS Safety Report 8340299-2 (Version None)
Quarter: 2012Q2

REPORT INFORMATION
  Report Type: 
  Country: None (occurrence: None)
  Receive Date: 20120502
  Receipt Date: 20120502
  Transmission Date: 20120825
  Serious: No
  Sender: FDA-Public Use
  Company Number: None

PATIENT
  Sex: Female
  Weight: 79.8331 kg

DRUGS (1)
  1. PRAVASTATIN [Suspect]
     Indication: HYPERLIPIDAEMIA
     Dosage: 40MG TAB @HS PO
     Route: 048
     Dates: start: 20120404, end: 20120407

REACTIONS (2)
  - PRODUCT QUALITY ISSUE [None]
  - PALPITATIONS [None]
